FAERS Safety Report 19962538 (Version 1)
Quarter: 2021Q4

REPORT INFORMATION
  Report Type: Spontaneous
  Country: US (occurrence: US)
  Receive Date: 20211013
  Receipt Date: 20211013
  Transmission Date: 20220303
  Serious: Yes (Hospitalization)
  Sender: FDA-Public Use
  Company Number: None

PATIENT
  Sex: Female

DRUGS (8)
  1. DROXIDOPA [Suspect]
     Active Substance: DROXIDOPA
     Indication: Autonomic neuropathy
     Route: 048
     Dates: start: 20210320
  2. DROXIDOPA [Suspect]
     Active Substance: DROXIDOPA
     Indication: Autonomic neuropathy
     Route: 048
     Dates: start: 20210329
  3. CAPTOPRIL [Concomitant]
     Active Substance: CAPTOPRIL
  4. CARBIDOPA [Concomitant]
     Active Substance: CARBIDOPA
  5. CLONIDINE [Concomitant]
     Active Substance: CLONIDINE
  6. NEUPRO [Concomitant]
     Active Substance: ROTIGOTINE
  7. OXYBUTYNIN. [Concomitant]
     Active Substance: OXYBUTYNIN CHLORIDE
  8. PYRIDOSTIGMI ER [Concomitant]

REACTIONS (1)
  - Therapy change [None]
